FAERS Safety Report 16171094 (Version 1)
Quarter: 2019Q2

REPORT INFORMATION
  Report Type: Spontaneous
  Country: GB (occurrence: GB)
  Receive Date: 20190408
  Receipt Date: 20190408
  Transmission Date: 20190711
  Serious: Yes (Death)
  Sender: FDA-Public Use
  Company Number: GB-PFIZER INC-2019141980

PATIENT
  Age: 60 Year
  Sex: Male

DRUGS (5)
  1. WATER FOR INJECTION [Suspect]
     Active Substance: WATER
     Indication: MEDICATION DILUTION
     Dosage: UNK, WEEKLY
     Route: 042
     Dates: start: 20190220
  2. REMICADE [Suspect]
     Active Substance: INFLIXIMAB
     Indication: PRODUCT USED FOR UNKNOWN INDICATION
     Dosage: 440 MG, UNK
     Route: 042
     Dates: start: 2012
  3. REMICADE [Suspect]
     Active Substance: INFLIXIMAB
     Dosage: PATIENT HAS BEEN HAVING HIS REGULAR INFLIXIMAB INFUSIONS AT HOME, ADMINISTERED BY ALCURA NURSES
     Route: 042
     Dates: start: 20170517
  4. BACTERIOSTATIC SODIUM CHLORIDE [Suspect]
     Active Substance: SODIUM CHLORIDE
     Indication: MEDICATION DILUTION
     Dosage: UNK, WEEKLY
     Route: 042
     Dates: start: 20190220
  5. REMICADE [Suspect]
     Active Substance: INFLIXIMAB
     Dosage: SCHEDULED 6 WEEKLY INFUSION OF IV INFLIXIMAB, COMPOUNDED WITH BAXTER WATER FOR INJECTION AND SODIUM
     Route: 042
     Dates: start: 20190220

REACTIONS (2)
  - Malaise [Fatal]
  - Death [Fatal]

NARRATIVE: CASE EVENT DATE: 20190301
